FAERS Safety Report 6475529-5 (Version None)
Quarter: 2009Q4

REPORT INFORMATION
  Report Type: 
  Country: None (occurrence: None)
  Receive Date: 20091204
  Receipt Date: 20091124
  Transmission Date: 20100525
  Serious: Yes (Death, Other)
  Sender: FDA-Public Use
  Company Number: GB-ROCHE-662038

PATIENT
  Sex: Female
  Weight: 65 kg

DRUGS (3)
  1. XELODA [Suspect]
     Dosage: DOSE 1-14 EVERY 21 DAYS
     Route: 048
     Dates: start: 20090909, end: 20091006
  2. ZOMETA [Concomitant]
     Dosage: MONTHLY
     Route: 042
     Dates: start: 20090909
  3. DOMPERIDONE [Concomitant]
     Indication: NAUSEA
     Dosage: AS REQUIRED (PRN)
     Route: 048

REACTIONS (3)
  - BREAST CANCER METASTATIC [None]
  - MENINGEAL DISORDER [None]
  - METASTASES TO SKIN [None]
